FAERS Safety Report 9613154 (Version 1)
Quarter: 2013Q4

REPORT INFORMATION
  Report Type: Spontaneous
  Country: GB (occurrence: GB)
  Receive Date: 20131010
  Receipt Date: 20131010
  Transmission Date: 20140711
  Serious: Yes (Other)
  Sender: FDA-Public Use
  Company Number: GB-ASTRAZENECA-2013SE73938

PATIENT
  Sex: Female

DRUGS (1)
  1. MARCAIN HEAVY [Suspect]
     Indication: SPINAL ANAESTHESIA
     Route: 008
     Dates: start: 20130913, end: 20130917

REACTIONS (2)
  - Pain [Unknown]
  - Drug ineffective [Unknown]
